FAERS Safety Report 23231867 (Version 1)
Quarter: 2023Q4

REPORT INFORMATION
  Report Type: Spontaneous
  Country: US (occurrence: None)
  Receive Date: 20231125
  Receipt Date: 20231125
  Transmission Date: 20240110
  Serious: No
  Sender: FDA-Public Use
  Company Number: None

PATIENT
  Age: 29 Year
  Sex: Female
  Weight: 57.15 kg

DRUGS (1)
  1. MOTEGRITY [Suspect]
     Active Substance: PRUCALOPRIDE SUCCINATE
     Indication: Constipation
     Dosage: FREQUENCY : DAILY;?
     Route: 048
     Dates: start: 20231101, end: 20231116

REACTIONS (4)
  - Abdominal pain upper [None]
  - Headache [None]
  - Fatigue [None]
  - Nervousness [None]

NARRATIVE: CASE EVENT DATE: 20231110
